FAERS Safety Report 19084700 (Version 1)
Quarter: 2021Q2

REPORT INFORMATION
  Report Type: Spontaneous
  Country: TW (occurrence: TW)
  Receive Date: 20210401
  Receipt Date: 20210401
  Transmission Date: 20210717
  Serious: Yes (Death, Hospitalization, Other)
  Sender: FDA-Public Use
  Company Number: TW-ABBVIE-21K-153-3838336-00

PATIENT
  Age: 71 Year
  Sex: Female

DRUGS (6)
  1. VENETOCLAX. [Suspect]
     Active Substance: VENETOCLAX
     Route: 048
     Dates: end: 202006
  2. VENETOCLAX. [Suspect]
     Active Substance: VENETOCLAX
     Indication: ACUTE MYELOID LEUKAEMIA REFRACTORY
     Route: 048
     Dates: start: 2019
  3. AZACITIDINE. [Concomitant]
     Active Substance: AZACITIDINE
     Indication: PRODUCT USED FOR UNKNOWN INDICATION
  4. VENETOCLAX. [Suspect]
     Active Substance: VENETOCLAX
     Indication: ACUTE MYELOID LEUKAEMIA
     Dosage: SEVEN DAYS FOR 6 CYCLES 1ST CYCLE
     Route: 048
     Dates: start: 201908
  5. VENETOCLAX. [Suspect]
     Active Substance: VENETOCLAX
     Indication: ACUTE MYELOID LEUKAEMIA RECURRENT
     Route: 048
     Dates: start: 2019
  6. CYTARABINE. [Concomitant]
     Active Substance: CYTARABINE
     Indication: PRODUCT USED FOR UNKNOWN INDICATION
     Dosage: 14 DAYS
     Dates: start: 202002

REACTIONS (4)
  - Acute myeloid leukaemia [Unknown]
  - Acinetobacter sepsis [Fatal]
  - Pancytopenia [Recovered/Resolved]
  - Pancytopenia [Recovered/Resolved]

NARRATIVE: CASE EVENT DATE: 20190819
